FAERS Safety Report 8991338 (Version 1)
Quarter: 2012Q4

REPORT INFORMATION
  Report Type: 
  Country: PK (occurrence: PK)
  Receive Date: 20121230
  Receipt Date: 20121230
  Transmission Date: 20130627
  Serious: Yes (Death)
  Sender: FDA-Public Use
  Company Number: PHHY2012PK118419

PATIENT
  Age: 77 Year
  Sex: Female

DRUGS (2)
  1. ACLASTA [Suspect]
     Indication: OSTEOPOROSIS
     Dosage: 5 mg (5mg/100ml), once a year
     Route: 042
     Dates: start: 20110709
  2. CALCIUM [Concomitant]
     Indication: OSTEOPOROSIS
     Dosage: UNK UNK, QD
     Dates: start: 2011

REACTIONS (1)
  - Death [Fatal]
